FAERS Safety Report 8547853-3 (Version None)
Quarter: 2012Q3

REPORT INFORMATION
  Report Type: 
  Country: None (occurrence: None)
  Receive Date: 20120727
  Receipt Date: 20120109
  Transmission Date: 20120928
  Serious: Yes (Other)
  Sender: FDA-Public Use
  Company Number: US-ASTRAZENECA-2011SE63947

PATIENT
  Age: 28 Year
  Sex: Female
  Weight: 75.7 kg

DRUGS (7)
  1. SEROQUEL [Suspect]
     Indication: DEPRESSION
     Route: 048
     Dates: start: 20110520
  2. JANUMET [Concomitant]
     Indication: DIABETES MELLITUS
     Dosage: 50/1000 TWO TIMES A DAY
     Route: 048
     Dates: start: 20090330
  3. CELEBREX [Concomitant]
     Indication: PAIN
     Route: 048
     Dates: start: 20100520
  4. EFFEXOR XR [Concomitant]
  5. LISINOPRIL [Concomitant]
     Indication: HYPERTENSION
     Route: 048
     Dates: start: 20091015
  6. ALBUTEROL [Concomitant]
     Dosage: 2 PUFFS QID AS REQUIRED
     Dates: start: 20100107
  7. TRAMADOL HYDROCHLORIDE [Suspect]
     Route: 065
     Dates: end: 20111020

REACTIONS (3)
  - CONVULSION [None]
  - INSOMNIA [None]
  - DRUG DOSE OMISSION [None]
